FAERS Safety Report 24260609 (Version 2)
Quarter: 2025Q3

REPORT INFORMATION
  Report Type: Spontaneous
  Country: US (occurrence: US)
  Receive Date: 20240828
  Receipt Date: 20250926
  Transmission Date: 20251021
  Serious: Yes (Other)
  Sender: MERCK SHARP & DOHME LLC
  Company Number: US-009507513-2408USA008618

PATIENT
  Age: 78 Year
  Sex: Male

DRUGS (2)
  1. KEYTRUDA [Suspect]
     Active Substance: PEMBROLIZUMAB
     Indication: Transitional cell carcinoma metastatic
     Dosage: DOSE DESCRIPTION : 200 MILLIGRAM, EVERY 2 WEEKS?DAILY DOSE : 14.2 MILLIGRAM?REGIMEN DOSE : 200  M...
     Dates: start: 2019, end: 202205
  2. KEYTRUDA [Suspect]
     Active Substance: PEMBROLIZUMAB
     Indication: Transitional cell carcinoma metastatic
     Dosage: DOSE DESCRIPTION : 100 MILLIGRAM, EVERY 2 WEEKS?DAILY DOSE : 7.1 MILLIGRAM?REGIMEN DOSE : 100  MI...
     Dates: start: 202205, end: 202212

REACTIONS (6)
  - Sjogren^s syndrome [Not Recovered/Not Resolved]
  - Malaise [Unknown]
  - Rash maculo-papular [Recovered/Resolved]
  - Rash pruritic [Recovered/Resolved]
  - Arthralgia [Recovered/Resolved]
  - Inappropriate schedule of product administration [Unknown]

NARRATIVE: CASE EVENT DATE: 20190101
